FAERS Safety Report 7502593-4 (Version None)
Quarter: 2011Q2

REPORT INFORMATION
  Report Type: 
  Country: None (occurrence: None)
  Receive Date: 20110525
  Receipt Date: 20110513
  Transmission Date: 20111010
  Serious: Yes (Death)
  Sender: FDA-Public Use
  Company Number: JP-CELGENEUS-087-21660-11051905

PATIENT
  Age: 69 Year
  Sex: Female
  Weight: 49 kg

DRUGS (4)
  1. ABRAXANE [Suspect]
     Indication: BREAST CANCER METASTATIC
     Dosage: 140 MILLIGRAM
     Route: 051
     Dates: start: 20110329, end: 20110329
  2. ABRAXANE [Suspect]
     Dosage: 140 MILLIGRAM
     Route: 051
     Dates: start: 20110412, end: 20110412
  3. PREDNISOLONE [Concomitant]
     Indication: PNEUMONIA
     Dosage: 10 MILLIGRAM
     Route: 048
     Dates: start: 20100701, end: 20110401
  4. RABEPRAZOLE SODIUM [Concomitant]
     Indication: PNEUMONIA
     Dosage: 10 MILLIGRAM
     Route: 048
     Dates: start: 20100701, end: 20110401

REACTIONS (3)
  - STOMATITIS [None]
  - INTERSTITIAL LUNG DISEASE [None]
  - WHITE BLOOD CELL COUNT DECREASED [None]
